FAERS Safety Report 6605117-9 (Version None)
Quarter: 2010Q1

REPORT INFORMATION
  Report Type: 
  Country: None (occurrence: None)
  Receive Date: 20100226
  Receipt Date: 20100217
  Transmission Date: 20100710
  Serious: Yes (Hospitalization)
  Sender: FDA-Public Use
  Company Number: US-ELI_LILLY_AND_COMPANY-US201002005295

PATIENT
  Sex: Female

DRUGS (5)
  1. HUMALOG [Suspect]
     Indication: DIABETES MELLITUS
     Dosage: 35 U, EACH MORNING
     Dates: start: 20000101
  2. HUMALOG [Suspect]
     Dosage: 45 U, OTHER
     Dates: start: 20000101
  3. HUMALOG [Suspect]
     Dosage: 45 U, EACH EVENING
     Dates: start: 20000101
  4. HUMALOG [Suspect]
     Dosage: UNK, AS NEEDED
     Dates: start: 20000101
  5. LANTUS [Concomitant]

REACTIONS (6)
  - BLOOD GLUCOSE INCREASED [None]
  - BRONCHITIS [None]
  - CHRONIC OBSTRUCTIVE PULMONARY DISEASE [None]
  - INJECTION SITE IRRITATION [None]
  - INJECTION SITE PAIN [None]
  - NASOPHARYNGITIS [None]
